FAERS Safety Report 6918122-X (Version None)
Quarter: 2010Q3

REPORT INFORMATION
  Report Type: 
  Country: None (occurrence: None)
  Receive Date: 20100810
  Receipt Date: 20100723
  Transmission Date: 20110219
  Serious: Yes (Other)
  Sender: FDA-Public Use
  Company Number: GB-AMGEN-QUU429260

PATIENT
  Sex: Female

DRUGS (5)
  1. ENBREL [Suspect]
     Indication: RHEUMATOID ARTHRITIS
     Route: 030
     Dates: start: 20090501
  2. LEVOTHYROXINE SODIUM [Concomitant]
  3. IBUPROFEN [Concomitant]
     Dosage: UNKNOWN
  4. UNSPECIFIED STEROIDS [Concomitant]
  5. UNSPECIFIED MEDICATION [Concomitant]

REACTIONS (2)
  - DIABETES MELLITUS [None]
  - INCORRECT ROUTE OF DRUG ADMINISTRATION [None]
